FAERS Safety Report 14261983 (Version 10)
Quarter: 2024Q2

REPORT INFORMATION
  Report Type: Spontaneous
  Country: IT (occurrence: IT)
  Receive Date: 20171208
  Receipt Date: 20240526
  Transmission Date: 20240715
  Serious: Yes (Other)
  Sender: FDA-Public Use
  Company Number: None

PATIENT
  Age: 33 Year
  Sex: Male
  Weight: 100 kg

DRUGS (43)
  1. LORAZEPAM [Suspect]
     Active Substance: LORAZEPAM
     Indication: Product used for unknown indication
     Dosage: 2.5 MILLIGRAM, ONCE A DAY
     Route: 048
     Dates: start: 20171112, end: 20171112
  2. RISPERIDONE [Suspect]
     Active Substance: RISPERIDONE
     Indication: Product used for unknown indication
     Dosage: 2 MILLIGRAM, 1 TOTAL, 6MG, 3 DF
     Route: 048
     Dates: start: 20171112, end: 20171112
  3. RISPERIDONE [Suspect]
     Active Substance: RISPERIDONE
     Dosage: 6 MILLIGRAM, 1 TOTAL
     Route: 048
     Dates: start: 20171112, end: 20171112
  4. RISPERDAL [Suspect]
     Active Substance: RISPERIDONE
     Indication: Product used for unknown indication
     Dosage: 3 DOSAGE FORM,TOTAL
     Route: 048
     Dates: start: 20171112, end: 20171112
  5. RISPERDAL [Suspect]
     Active Substance: RISPERIDONE
     Dosage: 2 MILLIGRAM
     Route: 048
     Dates: start: 20171112, end: 20171112
  6. RISPERDAL [Suspect]
     Active Substance: RISPERIDONE
     Dosage: 6 MILLIGRAM, NUMBER OF UNITS IN THE INTERVAL = 1
     Route: 048
     Dates: start: 20171112, end: 20171112
  7. LORAZEPAM [Suspect]
     Active Substance: LORAZEPAM
     Indication: Product used for unknown indication
     Dosage: 10 DOSAGE FORM,TOTAL
     Route: 048
     Dates: start: 20171112, end: 20171112
  8. LORAZEPAM [Suspect]
     Active Substance: LORAZEPAM
     Dosage: 25 DOSAGE FORM,TOTAL
     Route: 048
     Dates: start: 20171112, end: 20171112
  9. QUETIAPINE [Suspect]
     Active Substance: QUETIAPINE
     Indication: Product used for unknown indication
     Dosage: 1600 MILLIGRAM, ONCE A DAY
     Route: 048
     Dates: start: 20171112, end: 20171112
  10. QUETIAPINE [Suspect]
     Active Substance: QUETIAPINE
     Dosage: 200 MILLIGRAM, ONCE A DAY
     Route: 048
     Dates: start: 20171112, end: 20171112
  11. LANSOPRAZOLE [Suspect]
     Active Substance: LANSOPRAZOLE
     Indication: Product used for unknown indication
     Dosage: 15 MILLIGRAM, TOTAL
     Route: 048
     Dates: start: 20171112, end: 20171112
  12. LANSOPRAZOLE [Suspect]
     Active Substance: LANSOPRAZOLE
     Dosage: 2.5 MILLIGRAM, ONCE A DAY
     Route: 048
     Dates: start: 20171112, end: 20171112
  13. LANSOPRAZOLE [Suspect]
     Active Substance: LANSOPRAZOLE
     Dosage: 12 MILLIGRAM, ONCE A DAY
     Route: 048
     Dates: start: 20171112, end: 20171112
  14. LANSOPRAZOLE [Suspect]
     Active Substance: LANSOPRAZOLE
     Dosage: 6 MILLIGRAM, ONCE A DAY
     Route: 048
     Dates: start: 20171112, end: 20171112
  15. LANSOPRAZOLE [Suspect]
     Active Substance: LANSOPRAZOLE
     Dosage: 20 MILLIGRAM, ONCE A DAY
     Route: 048
     Dates: start: 20171112, end: 20171112
  16. LANSOPRAZOLE [Suspect]
     Active Substance: LANSOPRAZOLE
     Dosage: 25 MILLIGRAM, ONCE A DAY
     Route: 048
     Dates: start: 20171112, end: 20171112
  17. LANSOPRAZOLE [Suspect]
     Active Substance: LANSOPRAZOLE
     Dosage: 60 MILLIGRAM, ONCE A DAY
     Route: 048
     Dates: start: 20171112, end: 20171112
  18. LANSOPRAZOLE [Suspect]
     Active Substance: LANSOPRAZOLE
     Dosage: 25 MILLIGRAM, ONCE A DAY
     Route: 048
     Dates: start: 20171112, end: 20171112
  19. LANSOPRAZOLE [Suspect]
     Active Substance: LANSOPRAZOLE
     Dosage: 2 MILLIGRAM, ONCE A DAY
     Route: 048
     Dates: start: 20171112, end: 20171112
  20. QUETIAPINE [Suspect]
     Active Substance: QUETIAPINE
     Indication: Product used for unknown indication
     Dosage: 1600 MILLIGRAM, 8 DF TOTAL
     Route: 048
     Dates: start: 20171112, end: 20171112
  21. QUETIAPINE [Suspect]
     Active Substance: QUETIAPINE
     Dosage: 200 MILLIGRAM, 1 TOTAL
     Route: 048
     Dates: start: 20171112, end: 20171112
  22. QUETIAPINE [Suspect]
     Active Substance: QUETIAPINE
     Dosage: 8 DOSAGE FORM,TOTAL
     Route: 048
     Dates: start: 20171112, end: 20171112
  23. LORMETAZEPAM [Suspect]
     Active Substance: LORMETAZEPAM
     Indication: Product used for unknown indication
     Dosage: 2 MILLIGRAM, 12 MG, UNK ; IN TOTAL, 6 DF
     Route: 048
     Dates: start: 20171112, end: 20171112
  24. LORMETAZEPAM [Suspect]
     Active Substance: LORMETAZEPAM
     Dosage: 6 DOSAGE FORM,TOTAL
     Route: 048
     Dates: start: 20171112, end: 20171112
  25. LORMETAZEPAM [Suspect]
     Active Substance: LORMETAZEPAM
     Dosage: 12 MILLIGRAM, 1 TOTAL
     Route: 048
     Dates: start: 20171112, end: 20171112
  26. HALDOL [Suspect]
     Active Substance: HALOPERIDOL
     Indication: Product used for unknown indication
     Dosage: 40 MILLIGRAM, TOTAL
     Route: 048
     Dates: start: 20171112, end: 20171112
  27. HALDOL [Suspect]
     Active Substance: HALOPERIDOL
     Dosage: 4 MILLIGRAM, 1 TOTAL
     Route: 048
     Dates: start: 20171112, end: 20171112
  28. LANSOPRAZOLE [Suspect]
     Active Substance: LANSOPRAZOLE
     Indication: Product used for unknown indication
     Dosage: 60 MILLIGRAM, 4 DF TOTAL
     Route: 048
     Dates: start: 20171112, end: 20171112
  29. LANSOPRAZOLE [Suspect]
     Active Substance: LANSOPRAZOLE
     Dosage: 15 MILLIGRAM, 1 TOTAL
     Route: 048
     Dates: start: 20171112, end: 20171112
  30. LANSOPRAZOLE [Suspect]
     Active Substance: LANSOPRAZOLE
     Dosage: 4 DOSAGE FORM,TOTAL
     Route: 048
     Dates: start: 20171112, end: 20171112
  31. LANSOPRAZOLE [Suspect]
     Active Substance: LANSOPRAZOLE
     Dosage: 25 MILLIGRAM, ONCE A DAY
     Route: 048
     Dates: start: 20171112, end: 20171112
  32. LANSOPRAZOLE [Suspect]
     Active Substance: LANSOPRAZOLE
     Dosage: 20 MILLIGRAM, ONCE A DAY
     Route: 048
     Dates: start: 20171112, end: 20171112
  33. LANSOPRAZOLE [Suspect]
     Active Substance: LANSOPRAZOLE
     Dosage: 2 MILLIGRAM, ONCE A DAY
     Route: 048
     Dates: start: 20171112, end: 20171112
  34. LANSOPRAZOLE [Suspect]
     Active Substance: LANSOPRAZOLE
     Dosage: 6 MILLIGRAM, ONCE A DAY
     Route: 048
     Dates: start: 20171112, end: 20171112
  35. LANSOPRAZOLE [Suspect]
     Active Substance: LANSOPRAZOLE
     Dosage: 2.5 MILLIGRAM, ONCE A DAY
     Route: 048
     Dates: start: 20171112, end: 20171112
  36. LANSOPRAZOLE [Suspect]
     Active Substance: LANSOPRAZOLE
     Dosage: 12 MILLIGRAM, ONCE A DAY
     Route: 048
     Dates: start: 20171112, end: 20171112
  37. AKINETON [Suspect]
     Active Substance: BIPERIDEN HYDROCHLORIDE
     Indication: Product used for unknown indication
     Dosage: 40 MG, TOTAL,10 {DF}
     Route: 048
     Dates: start: 20171112, end: 20171112
  38. AKINETON [Suspect]
     Active Substance: BIPERIDEN HYDROCHLORIDE
     Dosage: 10 DOSAGE FORM,TOTAL
     Route: 048
     Dates: start: 20171112, end: 20171112
  39. AKINETON [Suspect]
     Active Substance: BIPERIDEN HYDROCHLORIDE
     Dosage: 4 MILLIGRAM, 0.1 TOTAL
     Route: 048
     Dates: start: 20171112, end: 20171112
  40. ZUCLOPENTHIXOL HYDROCHLORIDE [Suspect]
     Active Substance: ZUCLOPENTHIXOL HYDROCHLORIDE
     Indication: Product used for unknown indication
     Dosage: 20 MILLIGRAM
     Route: 048
     Dates: start: 20171112, end: 20171112
  41. ZUCLOPENTHIXOL HYDROCHLORIDE [Suspect]
     Active Substance: ZUCLOPENTHIXOL HYDROCHLORIDE
     Dosage: 10 MILLIGRAM, 0.5 TOTAL
     Route: 048
     Dates: start: 20171112, end: 20171112
  42. HALOPERIDOL [Suspect]
     Active Substance: HALOPERIDOL
     Indication: Product used for unknown indication
     Dosage: 4 MILLIGRAM, ONCE A DAY
     Route: 048
     Dates: start: 20171112, end: 20171112
  43. HALOPERIDOL [Suspect]
     Active Substance: HALOPERIDOL
     Dosage: 1 MILLIGRAM, ONCE A DAY
     Route: 048
     Dates: start: 20171112, end: 20171112

REACTIONS (3)
  - Self-injurious ideation [Unknown]
  - Self-destructive behaviour [Unknown]
  - Intentional product misuse [Unknown]

NARRATIVE: CASE EVENT DATE: 20171112
